FAERS Safety Report 9776703 (Version 2)
Quarter: 2014Q1

REPORT INFORMATION
  Report Type: Spontaneous
  Country: IT (occurrence: IT)
  Receive Date: 20131220
  Receipt Date: 20140106
  Transmission Date: 20141002
  Serious: Yes (Other)
  Sender: FDA-Public Use
  Company Number: PHHY2013IT147443

PATIENT
  Sex: Male

DRUGS (14)
  1. CIPROFLOXACIN SANDOZ [Suspect]
     Indication: URINARY TRACT INFECTION
     Dosage: 500 MG, QD
     Route: 048
     Dates: start: 20130902, end: 20130903
  2. LASIX [Suspect]
     Indication: DIURETIC THERAPY
     Dosage: 25 MG, QD
     Route: 048
     Dates: start: 20130101, end: 20130904
  3. RISPERDAL [Suspect]
     Dosage: 1.5 MG, QD
     Route: 048
     Dates: start: 20130605, end: 20130904
  4. ZOLOFT [Suspect]
     Indication: DEPRESSION
     Dosage: 50 MG, QD
     Route: 048
     Dates: start: 20130601, end: 20130904
  5. MIRTAZAPINA BLUEFISH PHARMA [Suspect]
     Indication: DEPRESSION
     Dosage: 30 MG, QD
     Route: 048
     Dates: start: 20130601, end: 20130904
  6. LANSOX [Concomitant]
     Dosage: 30 MG, UNK
  7. TOP-NITRO [Concomitant]
     Dosage: 5 MG, UNK
     Route: 062
  8. HUMULIN [Concomitant]
  9. DIBASE [Concomitant]
  10. SERETIDE [Concomitant]
     Route: 055
  11. SPIRIVA [Concomitant]
  12. COUMADINE [Concomitant]
     Dosage: 5 MG, UNK
  13. POTASSIUM CANRENOATE [Concomitant]
     Dosage: 100 MG, UNK
  14. TORVAST [Concomitant]
     Dosage: 10 MG, UNK

REACTIONS (5)
  - Speech disorder [Recovering/Resolving]
  - Sopor [Recovering/Resolving]
  - Disorientation [Recovering/Resolving]
  - Hypotension [Recovering/Resolving]
  - Syncope [Recovering/Resolving]
